FAERS Safety Report 5880086-8 (Version None)
Quarter: 2008Q3

REPORT INFORMATION
  Report Type: 
  Country: None (occurrence: None)
  Receive Date: 20080912
  Receipt Date: 20080902
  Transmission Date: 20090109
  Serious: Yes (Hospitalization, Disabling, Other)
  Sender: FDA-Public Use
  Company Number: US-AVENTIS-200618444US

PATIENT
  Sex: Female
  Weight: 68.18 kg

DRUGS (23)
  1. KETEK [Suspect]
     Indication: SINUSITIS
     Route: 048
     Dates: start: 20060220
  2. KETEK [Suspect]
     Indication: BRONCHITIS
     Route: 048
     Dates: start: 20060220
  3. LEVAQUIN [Suspect]
     Indication: SINUSITIS
     Dosage: DOSE: UNKNOWN
     Route: 048
     Dates: start: 20060123, end: 20060127
  4. PRESSORS [Suspect]
     Indication: SHOCK
     Dosage: DOSE: UNK
  5. LIPITOR [Concomitant]
     Dosage: DOSE: UNKNOWN
  6. LASIX [Concomitant]
     Dosage: DOSE: UNKNOWN
  7. HYDROCODONE/GUAIFENESIN COUGH SYRUP [Concomitant]
     Dosage: DOSE: UNK
  8. ALBUTEROL [Concomitant]
     Dosage: DOSE: Q 6 HOURS PRN
  9. WELLBUTRIN [Concomitant]
     Dosage: DOSE: UNK
  10. PAXIL [Concomitant]
     Dosage: DOSE: UNK
  11. K-DUR [Concomitant]
     Dosage: DOSE: UNK
  12. LOPID [Concomitant]
     Dosage: DOSE: UNK
  13. ACCOLATE [Concomitant]
     Dosage: DOSE: UNK
  14. CLARINEX [Concomitant]
     Dosage: DOSE: UNK
  15. ADVAIR DISKUS 100/50 [Concomitant]
     Dosage: DOSE: UNK
  16. NIFEDINE [Concomitant]
     Dosage: DOSE: UNK
  17. PRILOSEC [Concomitant]
     Dosage: DOSE: UNK
  18. LOTENSIN                           /00909102/ [Concomitant]
     Dosage: DOSE: UNK
  19. ASPIRIN [Concomitant]
     Dosage: DOSE: UNK
  20. FOLIC ACID [Concomitant]
     Dosage: DOSE: UNK
  21. PREDNISONE TAB [Concomitant]
     Indication: SINUSITIS
     Dosage: DOSE: UNK
  22. CEFZIL [Concomitant]
     Dates: start: 20060301
  23. PRESSORS [Concomitant]
     Indication: HYPOTENSION
     Dosage: DOSE: UNK
     Dates: start: 20070302

REACTIONS (32)
  - ABDOMINAL PAIN [None]
  - ABDOMINAL TENDERNESS [None]
  - ACIDOSIS [None]
  - ANAEMIA [None]
  - ATRIAL THROMBOSIS [None]
  - CHOLECYSTITIS ACUTE [None]
  - CIRCULATORY COLLAPSE [None]
  - DEPRESSION [None]
  - EXTREMITY NECROSIS [None]
  - GASTROINTESTINAL NECROSIS [None]
  - HYPERGLYCAEMIA [None]
  - HYPOTENSION [None]
  - IMPAIRED HEALING [None]
  - INTESTINAL PERFORATION [None]
  - INTESTINAL RESECTION [None]
  - LEG AMPUTATION [None]
  - LOSS OF CONSCIOUSNESS [None]
  - NAUSEA [None]
  - OSTEOMYELITIS [None]
  - PANCREATITIS [None]
  - PSEUDOMEMBRANOUS COLITIS [None]
  - RENAL FAILURE [None]
  - RESPIRATORY FAILURE [None]
  - SEPSIS [None]
  - SEPTIC SHOCK [None]
  - SKIN NECROSIS [None]
  - SKIN ULCER [None]
  - THROMBOCYTOPENIA [None]
  - VISUAL IMPAIRMENT [None]
  - VOMITING [None]
  - WEIGHT DECREASED [None]
  - WHITE BLOOD CELL COUNT INCREASED [None]
